FAERS Safety Report 4629710-8 (Version None)
Quarter: 2005Q2

REPORT INFORMATION
  Report Type: 
  Country: None (occurrence: None)
  Receive Date: 20050407
  Receipt Date: 20050322
  Transmission Date: 20051028
  Serious: Yes (Other)
  Sender: FDA-Public Use
  Company Number: FR_050306118

PATIENT
  Age: 81 Year
  Sex: Female

DRUGS (10)
  1. FORTEO [Suspect]
     Indication: OSTEOPOROSIS
     Dosage: 20 UG/1 DAY
     Dates: start: 20050302, end: 20050316
  2. ACETAMINOPHEN [Concomitant]
  3. PIASCLEDINE [Concomitant]
  4. ATEPADENE [Concomitant]
  5. MOPRAL (OMEPRAZOLE RATIOPHARM) [Concomitant]
  6. FLURBIPROFEN [Concomitant]
  7. LIPANOR (CIPROFIBRATE) [Concomitant]
  8. TOCOPHEROX [Concomitant]
  9. OROCAL VITAMIN D [Concomitant]
  10. SELENIUM TRACE METAL ADDITIVE [Suspect]

REACTIONS (2)
  - HAEMATEMESIS [None]
  - MELAENA [None]
